FAERS Safety Report 7503564-4 (Version None)
Quarter: 2011Q2

REPORT INFORMATION
  Report Type: 
  Country: None (occurrence: None)
  Receive Date: 20110525
  Receipt Date: 20110520
  Transmission Date: 20111010
  Serious: Yes (Other)
  Sender: FDA-Public Use
  Company Number: DE-ROCHE-778750

PATIENT
  Age: 52 Year
  Sex: Male

DRUGS (5)
  1. PROMETHAZINE [Concomitant]
     Indication: DEPRESSION
     Dates: start: 20110501
  2. SERTRALIN [Concomitant]
  3. AMITRIPTYLINE HCL [Concomitant]
  4. CLONAZEPAM [Suspect]
     Indication: DEPRESSION
     Route: 048
     Dates: start: 20050101, end: 20110501
  5. MELPERON [Concomitant]
     Indication: DEPRESSION
     Dates: start: 20110501

REACTIONS (4)
  - DRUG WITHDRAWAL SYNDROME [None]
  - SLEEP DISORDER [None]
  - AGITATION [None]
  - STUPOR [None]
